FAERS Safety Report 18739872 (Version 1)
Quarter: 2021Q1

REPORT INFORMATION
  Report Type: Spontaneous
  Country: FR (occurrence: FR)
  Receive Date: 20210114
  Receipt Date: 20210114
  Transmission Date: 20210419
  Serious: Yes (Other)
  Sender: FDA-Public Use
  Company Number: FR-GLAXOSMITHKLINE-FR2021004068

PATIENT
  Age: 33 Year
  Sex: Male

DRUGS (1)
  1. SCOPOLAMIN [Suspect]
     Active Substance: SCOPOLAMINE
     Indication: INTENTIONAL PRODUCT MISUSE
     Dosage: UNK (2 TRACES OR 0.2G ANNOUNCED)
     Route: 065
     Dates: start: 202012

REACTIONS (5)
  - Agitation [Recovered/Resolved]
  - Palpitations [Recovered/Resolved]
  - Mydriasis [Not Recovered/Not Resolved]
  - Drug abuse [Unknown]
  - Accommodation disorder [Not Recovered/Not Resolved]

NARRATIVE: CASE EVENT DATE: 202012
